FAERS Safety Report 16257740 (Version 3)
Quarter: 2019Q2

REPORT INFORMATION
  Report Type: Report from Study
  Country: US (occurrence: US)
  Receive Date: 20190430
  Receipt Date: 20190530
  Transmission Date: 20190711
  Serious: Yes (Other)
  Sender: FDA-Public Use
  Company Number: US-PFIZER INC-2019177584

PATIENT
  Age: 87 Year
  Sex: Female

DRUGS (1)
  1. IBRANCE [Suspect]
     Active Substance: PALBOCICLIB
     Indication: BREAST CANCER
     Dosage: 75 MG, CYCLIC (DAILY, 21 DAYS ON, AND 7 DAYS OFF)
     Route: 048
     Dates: start: 201812, end: 201905

REACTIONS (6)
  - Renal impairment [Unknown]
  - Oedema peripheral [Unknown]
  - Neoplasm progression [Unknown]
  - Weight increased [Unknown]
  - Decreased appetite [Unknown]
  - Gait disturbance [Unknown]
